FAERS Safety Report 17852158 (Version 2)
Quarter: 2020Q2

REPORT INFORMATION
  Report Type: Report from Study
  Country: US (occurrence: US)
  Receive Date: 20200602
  Receipt Date: 20200615
  Transmission Date: 20200714
  Serious: Yes (Death, Hospitalization)
  Sender: FDA-Public Use
  Company Number: US-TEVA-2020-US-1242143

PATIENT
  Age: 80 Year
  Sex: Female

DRUGS (1)
  1. WARFARIN [Suspect]
     Active Substance: WARFARIN
     Indication: ANTICOAGULANT THERAPY
     Route: 065

REACTIONS (6)
  - Cerebral haemorrhage [Fatal]
  - Acute respiratory failure [Fatal]
  - Intracranial pressure increased [Fatal]
  - Subdural haemorrhage [Fatal]
  - Intraventricular haemorrhage [Fatal]
  - Hypoventilation [Fatal]
